FAERS Safety Report 5110605-0 (Version None)
Quarter: 2006Q3

REPORT INFORMATION
  Report Type: 
  Country: None (occurrence: None)
  Receive Date: 20060921
  Receipt Date: 20060911
  Transmission Date: 20061208
  Serious: Yes (Hospitalization)
  Sender: FDA-Public Use
  Company Number: FR-ABBOTT-06P-056-0343574-00

PATIENT
  Age: 51 Year
  Sex: Male

DRUGS (4)
  1. DEPAKENE [Suspect]
     Indication: EPILEPSY
  2. RIFAMPICIN [Suspect]
     Indication: STAPHYLOCOCCAL SEPSIS
     Dates: end: 20060814
  3. CIPROFLOXACIN [Concomitant]
     Indication: SEPSIS
     Route: 048
     Dates: start: 20060731
  4. CLOXACILLIN SODIUM [Concomitant]
     Indication: SEPSIS
     Dates: start: 20060101, end: 20060731

REACTIONS (4)
  - CONVULSION [None]
  - DRUG INEFFECTIVE [None]
  - DRUG INTERACTION [None]
  - DRUG LEVEL DECREASED [None]
